FAERS Safety Report 11835230 (Version 2)
Quarter: 2015Q4

REPORT INFORMATION
  Report Type: Spontaneous
  Country: IT (occurrence: IT)
  Receive Date: 20151215
  Receipt Date: 20151222
  Transmission Date: 20160305
  Serious: Yes (Hospitalization)
  Sender: FDA-Public Use
  Company Number: IT-ACCORD-036140

PATIENT
  Age: 52 Year
  Sex: Male
  Weight: 79 kg

DRUGS (9)
  1. OXALIPLATINO ACCORD [Suspect]
     Active Substance: OXALIPLATIN
     Indication: COLON NEOPLASM
     Dosage: 170 MG CYCLICAL?STRENGTH: 5 MG/ML
     Route: 042
     Dates: start: 20150715
  2. CALCIUM LEVOFOLINATE TEVA [Concomitant]
     Active Substance: LEVOLEUCOVORIN CALCIUM
     Indication: COLON NEOPLASM
     Dosage: 400 MG??STRENGTH: 100 MG
     Route: 042
     Dates: start: 20150715, end: 20151118
  3. ATARAX [Concomitant]
     Active Substance: HYDROXYZINE\HYDROXYZINE HYDROCHLORIDE
     Indication: PREMEDICATION
     Dosage: 25 MG
     Route: 048
     Dates: start: 20150715, end: 20151118
  4. DEXAMETHASONE FOSFATO HOSPIRA [Concomitant]
     Indication: PREMEDICATION
     Dosage: 8 MG??STRENGTH: 8 MG/2 ML
     Route: 042
     Dates: start: 20150715, end: 20151118
  5. FLUOROURACIL ACCORD [Suspect]
     Active Substance: FLUOROURACIL
     Indication: COLON NEOPLASM
     Dosage: 6400 MG CYCLICAL?STRENGTH: 500 MG/ML
     Route: 042
     Dates: start: 20150715
  6. IRINOTECAN MYLAN [Suspect]
     Active Substance: IRINOTECAN
     Indication: COLON NEOPLASM
     Dosage: 330 MG CYCLICAL?STRENGTH: 20 MG/ML
     Route: 042
     Dates: start: 20150715
  7. AVASTIN [Concomitant]
     Active Substance: BEVACIZUMAB
     Indication: COLON NEOPLASM
     Dosage: 395 MG??STRENGTH: 400 MG
     Route: 042
     Dates: start: 20150715, end: 20151118
  8. PANTORC [Concomitant]
     Active Substance: PANTOPRAZOLE SODIUM
     Indication: PREMEDICATION
     Dosage: 40 MG
     Route: 042
     Dates: start: 20150715, end: 20151118
  9. ALOXI [Concomitant]
     Active Substance: PALONOSETRON HYDROCHLORIDE
     Indication: PREMEDICATION
     Dosage: 250 UG
     Route: 042
     Dates: start: 20150715, end: 20151118

REACTIONS (3)
  - Diarrhoea [Recovering/Resolving]
  - Asthenia [Recovering/Resolving]
  - Gastrointestinal toxicity [Recovering/Resolving]

NARRATIVE: CASE EVENT DATE: 20150724
